FAERS Safety Report 6366424-0 (Version None)
Quarter: 2009Q4

REPORT INFORMATION
  Report Type: 
  Country: None (occurrence: None)
  Receive Date: 20090915
  Receipt Date: 20090901
  Transmission Date: 20100525
  Serious: Yes (Hospitalization)
  Sender: FDA-Public Use
  Company Number: 8051667

PATIENT
  Age: 29 Year
  Sex: Female

DRUGS (2)
  1. KEPPRA [Suspect]
     Indication: METASTASES TO CENTRAL NERVOUS SYSTEM
     Dosage: 500 MG 2/D PO
     Route: 048
     Dates: start: 20090731, end: 20090809
  2. MUPHORAN [Suspect]
     Indication: METASTATIC MALIGNANT MELANOMA
     Dosage: 1/W IV
     Route: 042
     Dates: start: 20090708, end: 20090721

REACTIONS (1)
  - PANCYTOPENIA [None]
